FAERS Safety Report 10146301 (Version 1)
Quarter: 2014Q2

REPORT INFORMATION
  Report Type: Spontaneous
  Country: US (occurrence: None)
  Receive Date: 20140430
  Receipt Date: 20140430
  Transmission Date: 20141212
  Serious: Yes (Disabling)
  Sender: FDA-Public Use
  Company Number: None

PATIENT
  Age: 4 Year
  Sex: Male
  Weight: 19.05 kg

DRUGS (1)
  1. SINGULAIR 4 MG [Suspect]
     Indication: ASTHMA
     Dosage: 1 PILL TAKEN BY MOUTH
     Route: 048

REACTIONS (9)
  - Mood swings [None]
  - Aggression [None]
  - Irritability [None]
  - Crying [None]
  - Fear [None]
  - Abnormal dreams [None]
  - Educational problem [None]
  - Disturbance in attention [None]
  - Emotional disorder [None]
